FAERS Safety Report 11797316 (Version 2)
Quarter: 2015Q4

REPORT INFORMATION
  Report Type: Spontaneous
  Country: JP (occurrence: JP)
  Receive Date: 20151203
  Receipt Date: 20151210
  Transmission Date: 20160305
  Serious: Yes (Hospitalization)
  Sender: FDA-Public Use
  Company Number: JP-SA-2015SA195257

PATIENT
  Age: 57 Year
  Sex: Male

DRUGS (1)
  1. OXALIPLATIN. [Suspect]
     Active Substance: OXALIPLATIN
     Indication: RECTAL CANCER STAGE IV
     Dosage: INFUSION
     Route: 065

REACTIONS (18)
  - Pruritus generalised [Recovered/Resolved]
  - Haemodynamic instability [Recovered/Resolved]
  - Dyspnoea [Recovered/Resolved]
  - Fibrin D dimer increased [Recovered/Resolved]
  - Loss of consciousness [Recovered/Resolved]
  - Blood pressure decreased [Recovered/Resolved]
  - Oxygen saturation decreased [Recovered/Resolved]
  - Heart rate increased [Recovered/Resolved]
  - Hyperfibrinolysis [Recovered/Resolved]
  - Blood fibrinogen increased [Recovered/Resolved]
  - Respiratory rate increased [Recovered/Resolved]
  - Anaphylactic reaction [Recovered/Resolved]
  - Urticaria [Recovered/Resolved]
  - Skin lesion [Recovered/Resolved]
  - Fibrin degradation products increased [Recovered/Resolved]
  - Anaphylactic shock [Recovered/Resolved]
  - Respiratory failure [Recovered/Resolved]
  - Prothrombin time prolonged [Recovered/Resolved]
